FAERS Safety Report 7794061-X (Version None)
Quarter: 2011Q4

REPORT INFORMATION
  Report Type: 
  Country: None (occurrence: None)
  Receive Date: 20111004
  Receipt Date: 20110922
  Transmission Date: 20120403
  Serious: Yes (Other)
  Sender: FDA-Public Use
  Company Number: CA-JNJFOC-20110504946

PATIENT
  Sex: Female
  Weight: 66 kg

DRUGS (6)
  1. PREVACID [Concomitant]
     Route: 065
  2. PERINDOPRIL ERBUMINE [Concomitant]
     Route: 065
  3. ZOLOFT [Concomitant]
     Route: 065
  4. REMICADE [Suspect]
     Indication: CROHN'S DISEASE
     Route: 042
  5. IRON SUPPLEMENT, NOS [Concomitant]
     Route: 065
  6. IMURAN [Concomitant]
     Route: 048

REACTIONS (3)
  - SYNCOPE [None]
  - EYE INFECTION [None]
  - VISION BLURRED [None]
